FAERS Safety Report 4887207-4 (Version None)
Quarter: 2005Q4

REPORT INFORMATION
  Report Type: 
  Country: None (occurrence: None)
  Receive Date: 20051223
  Receipt Date: 20050627
  Transmission Date: 20060501
  Serious: Yes (Hospitalization, Other)
  Sender: FDA-Public Use
  Company Number: USA050496929

PATIENT
  Age: 70 Year
  Sex: Female

DRUGS (6)
  1. HUMULIN R [Suspect]
     Indication: DIABETES MELLITUS
     Dates: end: 20050407
  2. INSULIN [Suspect]
     Indication: DIABETES MELLITUS
     Dates: start: 19740101
  3. HUMALOG [Suspect]
     Indication: DIABETES MELLITUS
     Dates: start: 20050407
  4. MORPHINE [Concomitant]
  5. NYSTATIN [Concomitant]
  6. INSULIN GLARGINE [Concomitant]

REACTIONS (6)
  - BLOOD GLUCOSE FLUCTUATION [None]
  - BLOOD GLUCOSE INCREASED [None]
  - DRUG HYPERSENSITIVITY [None]
  - FALL [None]
  - HIP FRACTURE [None]
  - HYPOGLYCAEMIA [None]
